FAERS Safety Report 6522868-5 (Version None)
Quarter: 2009Q4

REPORT INFORMATION
  Report Type: 
  Country: None (occurrence: None)
  Receive Date: 20091230
  Receipt Date: 20091223
  Transmission Date: 20100525
  Serious: Yes (Hospitalization)
  Sender: FDA-Public Use
  Company Number: IT-BAXTER-2009BH017292

PATIENT
  Age: 66 Year
  Sex: Female

DRUGS (5)
  1. HOLOXAN BAXTER [Suspect]
     Indication: ENDOMETRIAL SARCOMA
     Route: 042
     Dates: start: 20090825, end: 20090917
  2. UROMITEXAN BAXTER [Suspect]
     Indication: DRUG USE FOR UNKNOWN INDICATION
     Route: 042
     Dates: start: 20090915, end: 20090917
  3. EPIRUBICIN HYDROCHLORIDE [Suspect]
     Indication: ENDOMETRIAL SARCOMA
     Route: 042
     Dates: start: 20090825, end: 20090917
  4. KYTRIL [Concomitant]
     Indication: DRUG USE FOR UNKNOWN INDICATION
     Route: 042
     Dates: start: 20090915, end: 20090917
  5. SOLDESAM [Concomitant]
     Indication: DRUG USE FOR UNKNOWN INDICATION
     Route: 042
     Dates: start: 20090915, end: 20090917

REACTIONS (3)
  - LEUKOPENIA [None]
  - NEUTROPENIA [None]
  - THROMBOCYTOPENIA [None]
